FAERS Safety Report 8765326 (Version 1)
Quarter: 2012Q4

REPORT INFORMATION
  Report Type: 
  Country: CH (occurrence: CH)
  Receive Date: 20120830
  Receipt Date: 20120830
  Transmission Date: 20130627
  Serious: Yes (Other)
  Sender: FDA-Public Use
  Company Number: CH-ASTELLAS-2012EU006202

PATIENT
  Age: 26 Year
  Sex: Female

DRUGS (1)
  1. VESICARE [Suspect]
     Indication: BLADDER DISORDER
     Dosage: 5 mg, UID/QD
     Route: 065
     Dates: start: 2012

REACTIONS (1)
  - Exposure during pregnancy [Unknown]
